FAERS Safety Report 4512457-6 (Version None)
Quarter: 2005Q1

REPORT INFORMATION
  Report Type: 
  Country: None (occurrence: None)
  Receive Date: 20041008
  Receipt Date: 20040712
  Transmission Date: 20050727
  Serious: No
  Sender: FDA-Public Use
  Company Number: 374521

PATIENT
  Age: 49 Year
  Sex: Male
  Weight: 96.6 kg

DRUGS (15)
  1. FUZEON [Suspect]
     Indication: DRUG USE FOR UNKNOWN INDICATION
     Dosage: 90 MG   2 PER DAY   SUBCUTANEOUS
     Route: 058
     Dates: start: 20030815
  2. ANTIRETROVIRALS (ANTIRETROVIRALS) [Concomitant]
  3. ATORVASTATIN (ATORVASTATIN CALCIUM) [Concomitant]
  4. BENAZEPRIL (BENAZEPRIL HYDROCHLORIDE) [Concomitant]
  5. ASPIRIN [Concomitant]
  6. GEMFIBROZIL [Concomitant]
  7. METFORMIN HCL [Concomitant]
  8. ROFECOXIB [Concomitant]
  9. ATAZANAVIR (ATAZANAVIR) [Concomitant]
  10. RITONAVIR (RITONAVIR) [Concomitant]
  11. TENOFOVIR (TENOFOVIR) [Concomitant]
  12. EMTRICITABINE (EMTRICITABINE) [Concomitant]
  13. TESTOSTERONE [Concomitant]
  14. INSULINE ULTRALENTE (INSULIN ZINC (SUSPENSION)) [Concomitant]
  15. REGULAR INSULIN [Concomitant]

REACTIONS (5)
  - EOSINOPHILIA [None]
  - HYPERSENSITIVITY [None]
  - RASH [None]
  - RASH ERYTHEMATOUS [None]
  - RASH PRURITIC [None]
